FAERS Safety Report 4807136-1 (Version None)
Quarter: 2005Q4

REPORT INFORMATION
  Report Type: 
  Country: None (occurrence: None)
  Receive Date: 20051024
  Receipt Date: 20050920
  Transmission Date: 20060501
  Serious: Yes (Hospitalization)
  Sender: FDA-Public Use
  Company Number: 2005AP04987

PATIENT
  Age: 30312 Day
  Sex: Male

DRUGS (9)
  1. CASODEX [Suspect]
     Indication: PROSTATE CANCER
     Route: 048
     Dates: start: 20050907, end: 20050913
  2. FLUMARIN [Suspect]
     Indication: BIOPSY PROSTATE
     Route: 042
     Dates: start: 20050901, end: 20050901
  3. RENIVEZE [Concomitant]
     Indication: HYPERTENSION
     Route: 048
  4. WARFARIN [Concomitant]
     Indication: ATRIAL FLUTTER
     Route: 048
  5. FAMOSTAGINE [Concomitant]
     Indication: GASTRIC ULCER
     Route: 048
  6. AMOBAN [Concomitant]
     Indication: INSOMNIA
     Route: 048
  7. MIYA BM [Concomitant]
     Indication: GASTRITIS
     Route: 048
  8. FUROSEMIDE [Concomitant]
     Indication: CARDIAC FAILURE CONGESTIVE
     Route: 048
  9. ALLOZYM [Concomitant]
     Indication: HYPERURICAEMIA
     Route: 048

REACTIONS (1)
  - TOXIC SKIN ERUPTION [None]
